FAERS Safety Report 7379913-7 (Version None)
Quarter: 2011Q1

REPORT INFORMATION
  Report Type: 
  Country: None (occurrence: None)
  Receive Date: 20110329
  Receipt Date: 20110323
  Transmission Date: 20110831
  Serious: Yes (Hospitalization)
  Sender: FDA-Public Use
  Company Number: FR-TEVA-273135ISR

PATIENT
  Sex: Male

DRUGS (3)
  1. METHOTREXATE [Suspect]
     Indication: BONE SARCOMA
     Route: 042
     Dates: end: 20101222
  2. ETOPOSIDE [Suspect]
     Indication: BONE SARCOMA
     Route: 042
     Dates: start: 20101229, end: 20101229
  3. ZOLEDRONIC ACID [Concomitant]
     Indication: BONE SARCOMA

REACTIONS (4)
  - HEADACHE [None]
  - FEBRILE BONE MARROW APLASIA [None]
  - RASH [None]
  - PYREXIA [None]
